FAERS Safety Report 21977710 (Version 1)
Quarter: 2023Q1

REPORT INFORMATION
  Report Type: Spontaneous
  Country: FR (occurrence: FR)
  Receive Date: 20230210
  Receipt Date: 20230210
  Transmission Date: 20230417
  Serious: Yes (Life-Threatening)
  Sender: FDA-Public Use
  Company Number: None

PATIENT
  Age: 71 Year
  Sex: Female
  Weight: 72 kg

DRUGS (8)
  1. ETOPOSIDE [Suspect]
     Active Substance: ETOPOSIDE
     Indication: Angioimmunoblastic T-cell lymphoma
     Dates: start: 20221212, end: 20221214
  2. DOXORUBICIN [Suspect]
     Active Substance: DOXORUBICIN
     Indication: Angioimmunoblastic T-cell lymphoma
     Dates: start: 20221212, end: 20221212
  3. VINCRISTINE SULFATE [Suspect]
     Active Substance: VINCRISTINE SULFATE
     Indication: Angioimmunoblastic T-cell lymphoma
     Dates: start: 20221212, end: 20221212
  4. VINCRISTINE SULFATE [Suspect]
     Active Substance: VINCRISTINE SULFATE
     Dates: start: 20221202, end: 20221202
  5. CYCLOPHOSPHAMIDE [Suspect]
     Active Substance: CYCLOPHOSPHAMIDE
     Indication: Angioimmunoblastic T-cell lymphoma
     Dates: start: 20221212, end: 20221212
  6. CYCLOPHOSPHAMIDE [Suspect]
     Active Substance: CYCLOPHOSPHAMIDE
     Dates: start: 20221202, end: 20221202
  7. PREDNISONE [Suspect]
     Active Substance: PREDNISONE
     Indication: Angioimmunoblastic T-cell lymphoma
     Dates: start: 20221212, end: 20221218
  8. PREDNISONE [Suspect]
     Active Substance: PREDNISONE
     Dates: start: 20221202, end: 20221209

REACTIONS (4)
  - Pneumocystis jirovecii pneumonia [Recovered/Resolved]
  - Septic shock [Recovered/Resolved]
  - Febrile bone marrow aplasia [Recovered/Resolved]
  - Influenza [Recovered/Resolved]

NARRATIVE: CASE EVENT DATE: 20221218
